FAERS Safety Report 20093588 (Version 1)
Quarter: 2021Q4

REPORT INFORMATION
  Report Type: Spontaneous
  Country: US (occurrence: None)
  Receive Date: 20211121
  Receipt Date: 20211121
  Transmission Date: 20220303
  Serious: Yes (Death, Hospitalization)
  Sender: FDA-Public Use
  Company Number: US-ROCHE-2960434

PATIENT
  Age: 37 Year
  Sex: Male
  Weight: 52.5 kg

DRUGS (2)
  1. TOCILIZUMAB [Suspect]
     Active Substance: TOCILIZUMAB
     Indication: COVID-19
     Route: 042
     Dates: start: 20211016, end: 20211016
  2. DEXAMETHASONE [Concomitant]
     Active Substance: DEXAMETHASONE
     Dates: start: 20211016, end: 20211025

REACTIONS (6)
  - Death [Fatal]
  - Hypoxia [Unknown]
  - Diarrhoea [Unknown]
  - Tachycardia [Recovered/Resolved]
  - Intentional product use issue [Unknown]
  - Off label use [Unknown]
